FAERS Safety Report 10652765 (Version 1)
Quarter: 2014Q4

REPORT INFORMATION
  Report Type: Spontaneous
  Country: US (occurrence: US)
  Receive Date: 20141215
  Receipt Date: 20141215
  Transmission Date: 20150529
  Serious: No
  Sender: FDA-Public Use
  Company Number: US-009507513-1412USA005116

PATIENT
  Age: 66 Year
  Sex: Female

DRUGS (6)
  1. LOSARTAN POTASSIUM TABLETS [Concomitant]
     Active Substance: LOSARTAN POTASSIUM
  2. DULERA [Suspect]
     Active Substance: FORMOTEROL FUMARATE DIHYDRATE\MOMETASONE FUROATE
     Dosage: 2 DF, BID
     Route: 055
     Dates: start: 20141028
  3. ENTOCORT [Concomitant]
     Active Substance: BUDESONIDE
  4. ESTRADIOL. [Concomitant]
     Active Substance: ESTRADIOL
  5. NIMODIPINE. [Concomitant]
     Active Substance: NIMODIPINE
  6. ZOLPIDEM TARTRATE. [Concomitant]
     Active Substance: ZOLPIDEM TARTRATE

REACTIONS (4)
  - Dizziness [Recovered/Resolved]
  - Incorrect dose administered [Unknown]
  - Mydriasis [Recovered/Resolved]
  - Product quality issue [Unknown]

NARRATIVE: CASE EVENT DATE: 20141204
